FAERS Safety Report 9522139 (Version 2)
Quarter: 2013Q4

REPORT INFORMATION
  Report Type: Spontaneous
  Country: US (occurrence: US)
  Receive Date: 20130913
  Receipt Date: 20131007
  Transmission Date: 20140711
  Serious: Yes (Hospitalization)
  Sender: FDA-Public Use
  Company Number: US-PFIZER INC-2013259404

PATIENT
  Age: 56 Year
  Sex: Female

DRUGS (2)
  1. SUTENT [Suspect]
     Indication: NEOPLASM MALIGNANT
     Dosage: 12.5 MG, CYCLIC DAILY 4 WEEKS ON, 2 WEEKS OFF
     Route: 048
     Dates: start: 20090326, end: 2013
  2. SUTENT [Suspect]
     Dosage: 12.5 MG, EVERY OTHER DAY
     Dates: start: 2013

REACTIONS (1)
  - Emphysema [Unknown]
